FAERS Safety Report 16962734 (Version 2)
Quarter: 2020Q1

REPORT INFORMATION
  Report Type: Report from Study
  Country: US (occurrence: US)
  Receive Date: 20191025
  Receipt Date: 20200123
  Transmission Date: 20200409
  Serious: Yes (Hospitalization, Other)
  Sender: FDA-Public Use
  Company Number: US-ACTELION-A-US2019-196788

PATIENT
  Sex: Male
  Weight: 92.52 kg

DRUGS (3)
  1. VELETRI [Suspect]
     Active Substance: EPOPROSTENOL
     Indication: PULMONARY HYPERTENSION
     Dosage: 8 NG/KG, PER MIN
     Route: 042
  2. VELETRI [Suspect]
     Active Substance: EPOPROSTENOL
     Dosage: 11 NG/KG, PER MIN
     Route: 042
     Dates: end: 20191005
  3. TADALAFIL. [Concomitant]
     Active Substance: TADALAFIL

REACTIONS (5)
  - Trismus [Unknown]
  - Liver transplant [Unknown]
  - Pain in jaw [Unknown]
  - Headache [Unknown]
  - Vomiting [Unknown]
